FAERS Safety Report 6211194-X (Version None)
Quarter: 2009Q2

REPORT INFORMATION
  Report Type: 
  Country: None (occurrence: None)
  Receive Date: 20090602
  Receipt Date: 20090526
  Transmission Date: 20091009
  Serious: Yes (Hospitalization, Disabling, Other)
  Sender: FDA-Public Use
  Company Number: US-BAYER-200839433NA

PATIENT
  Age: 36 Year
  Sex: Female
  Weight: 97 kg

DRUGS (14)
  1. NEXAVAR [Suspect]
     Indication: HEPATIC NEOPLASM MALIGNANT
     Dosage: TOTAL DAILY DOSE: 400 MG  UNIT DOSE: 200 MG
     Route: 048
     Dates: start: 20090309, end: 20090420
  2. NEXAVAR [Suspect]
     Route: 048
     Dates: end: 20090309
  3. NEXAVAR [Suspect]
     Dosage: TOTAL DAILY DOSE: 400 MG  UNIT DOSE: 200 MG
     Route: 048
     Dates: start: 20081201
  4. NEXAVAR [Suspect]
     Dosage: TOTAL DAILY DOSE: 800 MG  UNIT DOSE: 200 MG
     Route: 048
     Dates: start: 20081117, end: 20081201
  5. NEXAVAR [Suspect]
     Dosage: TOTAL DAILY DOSE: 400 MG  UNIT DOSE: 200 MG
     Route: 048
     Dates: start: 20081201, end: 20081201
  6. DEPO-PROVERA [Concomitant]
     Route: 030
  7. PROGRAF [Concomitant]
     Dosage: TOTAL DAILY DOSE: 6 MG
     Route: 048
  8. CELLCEPT [Concomitant]
     Dosage: TOTAL DAILY DOSE: 2000 MG  UNIT DOSE: 500 MG
     Route: 048
  9. PREDNISONE [Concomitant]
     Dosage: TOTAL DAILY DOSE: 5 MG
     Route: 048
  10. TOPROL-XL [Concomitant]
     Dosage: TOTAL DAILY DOSE: 100 MG
     Route: 048
     Dates: start: 20081201
  11. TOPROL-XL [Concomitant]
     Dosage: TOTAL DAILY DOSE: 50 MG
     Route: 048
  12. EPIVIR [Concomitant]
     Dosage: TOTAL DAILY DOSE: 100 MG
     Route: 048
  13. NOVOLOG [Concomitant]
     Dosage: 0-5 UNITS Q AM; 10-15 UNITS Q DINNER
  14. LANTUS [Concomitant]
     Dosage: TOTAL DAILY DOSE: 10 U

REACTIONS (11)
  - ABASIA [None]
  - ABDOMINAL PAIN [None]
  - BLOOD PRESSURE INCREASED [None]
  - DIARRHOEA [None]
  - DIZZINESS [None]
  - GASTROENTERITIS VIRAL [None]
  - NEUTROPENIA [None]
  - PALMAR-PLANTAR ERYTHRODYSAESTHESIA SYNDROME [None]
  - PALPITATIONS [None]
  - RASH [None]
  - WHITE BLOOD CELL COUNT DECREASED [None]
